FAERS Safety Report 6915462-5 (Version None)
Quarter: 2010Q3

REPORT INFORMATION
  Report Type: 
  Country: None (occurrence: None)
  Receive Date: 20100809
  Receipt Date: 20090803
  Transmission Date: 20110219
  Serious: No
  Sender: FDA-Public Use
  Company Number: US-ABBOTT-09P-163-0589606-00

PATIENT
  Sex: Female
  Weight: 50.394 kg

DRUGS (4)
  1. DEPAKOTE ER [Suspect]
     Indication: EPILEPSY
     Route: 048
     Dates: start: 20081201, end: 20090701
  2. DEPAKOTE ER [Suspect]
     Route: 048
     Dates: start: 20090701
  3. DEPAKOTE [Suspect]
     Indication: EPILEPSY
     Route: 048
     Dates: start: 20090501, end: 20090701
  4. DIPHENHYDRAMINE [Concomitant]
     Indication: INSOMNIA

REACTIONS (8)
  - ALOPECIA [None]
  - CONTUSION [None]
  - CONVULSION [None]
  - DIZZINESS [None]
  - FATIGUE [None]
  - TREMOR [None]
  - VISION BLURRED [None]
  - VOMITING [None]
